FAERS Safety Report 17407551 (Version 1)
Quarter: 2020Q1

REPORT INFORMATION
  Report Type: Report from Study
  Country: US (occurrence: US)
  Receive Date: 20200212
  Receipt Date: 20200212
  Transmission Date: 20200409
  Serious: Yes (Other)
  Sender: FDA-Public Use
  Company Number: US-SA-2020SA031589

PATIENT
  Age: 40 Year
  Sex: Female

DRUGS (4)
  1. PROBIOTICS NOS [Concomitant]
     Active Substance: PROBIOTICS NOS
     Route: 048
  2. ALEMTUZUMAB [Suspect]
     Active Substance: ALEMTUZUMAB
     Indication: MULTIPLE SCLEROSIS
     Dosage: 12 MG, QD
     Route: 041
     Dates: start: 20190513, end: 20190517
  3. VITAMINS NOS [Concomitant]
     Active Substance: VITAMINS
     Route: 048
  4. VITAMIN B [Concomitant]
     Active Substance: VITAMIN B
     Route: 048

REACTIONS (5)
  - Increased tendency to bruise [Unknown]
  - Neutropenia [Unknown]
  - Memory impairment [Not Recovered/Not Resolved]
  - Menorrhagia [Unknown]
  - White blood cell count decreased [Not Recovered/Not Resolved]

NARRATIVE: CASE EVENT DATE: 201911
